FAERS Safety Report 7369215-7 (Version None)
Quarter: 2011Q1

REPORT INFORMATION
  Report Type: 
  Country: None (occurrence: None)
  Receive Date: 20110323
  Receipt Date: 20110315
  Transmission Date: 20110831
  Serious: Yes (Hospitalization)
  Sender: FDA-Public Use
  Company Number: DE-ROCHE-765978

PATIENT
  Age: 62 Year
  Sex: Female
  Weight: 48.1 kg

DRUGS (5)
  1. PACLITAXEL [Suspect]
     Dosage: DOSE: 140
     Route: 065
     Dates: start: 20100111
  2. DEXAMETHASONE [Concomitant]
     Dates: start: 20100111
  3. ONDANSETRON [Concomitant]
  4. ZOLEDRONIC ACID [Suspect]
     Indication: PROPHYLAXIS
     Route: 042
     Dates: start: 20100125
  5. BEVACIZUMAB [Suspect]
     Dosage: DOSE: 570
     Route: 065
     Dates: start: 20100111

REACTIONS (5)
  - GENERAL PHYSICAL HEALTH DETERIORATION [None]
  - DIARRHOEA [None]
  - CHILLS [None]
  - DEHYDRATION [None]
  - PYREXIA [None]
